FAERS Safety Report 7217780-2 (Version None)
Quarter: 2011Q1

REPORT INFORMATION
  Report Type: 
  Country: None (occurrence: None)
  Receive Date: 20110110
  Receipt Date: 20101230
  Transmission Date: 20110831
  Serious: Yes (Hospitalization, Other)
  Sender: FDA-Public Use
  Company Number: PHHO2006FR05415

PATIENT
  Sex: Male
  Weight: 25.8 kg

DRUGS (5)
  1. EXJADE [Suspect]
     Dosage: 500 MG, MORNING AND EVENING
     Route: 048
     Dates: start: 20100401
  2. EXJADE [Suspect]
     Indication: BLOOD IRON INCREASED
     Dosage: 30 MG/KG, QD
     Route: 048
     Dates: start: 20040128, end: 20060403
  3. DEFERASIROX [Concomitant]
     Dosage: 750 MG, A DAY
  4. EXJADE [Suspect]
     Dosage: 500 MG, A DAY
     Dates: start: 20101001
  5. EXJADE [Suspect]
     Dosage: 750 MG, IN MORNING AND EVENING
     Route: 048
     Dates: start: 20090101

REACTIONS (7)
  - HAEMATURIA [None]
  - PROTEINURIA [None]
  - PYREXIA [None]
  - COUGH [None]
  - RENAL TUBULAR DISORDER [None]
  - GLOMERULONEPHRITIS [None]
  - BETA 2 MICROGLOBULIN URINE INCREASED [None]
